FAERS Safety Report 17064196 (Version 2)
Quarter: 2020Q1

REPORT INFORMATION
  Report Type: Spontaneous
  Country: BE (occurrence: BE)
  Receive Date: 20191122
  Receipt Date: 20200123
  Transmission Date: 20200409
  Serious: Yes (Death, Other)
  Sender: FDA-Public Use
  Company Number: BE-BRISTOL-MYERS SQUIBB COMPANY-BMS-2019-111668

PATIENT
  Age: 42 Year
  Sex: Male

DRUGS (4)
  1. PANTOMED [PANTOPRAZOLE SODIUM SESQUIHYDRATE] [Concomitant]
     Active Substance: PANTOPRAZOLE SODIUM
     Indication: ULCER
     Route: 042
  2. OPDIVO [Suspect]
     Active Substance: NIVOLUMAB
     Indication: METASTATIC MALIGNANT MELANOMA
     Dosage: UNK
     Route: 042
     Dates: start: 20190708, end: 20191029
  3. YERVOY [Suspect]
     Active Substance: IPILIMUMAB
     Indication: METASTATIC MALIGNANT MELANOMA
     Dosage: UNK
     Route: 042
     Dates: start: 20190708, end: 20191029
  4. KEPPRA [Concomitant]
     Active Substance: LEVETIRACETAM
     Indication: EPILEPSY
     Dosage: 1000
     Route: 065
     Dates: start: 201906

REACTIONS (1)
  - Hepatitis [Fatal]

NARRATIVE: CASE EVENT DATE: 20191106
